FAERS Safety Report 4267061-4 (Version None)
Quarter: 2004Q1

REPORT INFORMATION
  Report Type: 
  Country: None (occurrence: None)
  Receive Date: 20040107
  Receipt Date: 20031229
  Transmission Date: 20041129
  Serious: Yes (Hospitalization)
  Sender: FDA-Public Use
  Company Number: JP-JNJFOC-20031204888

PATIENT
  Age: 68 Year
  Sex: Female

DRUGS (4)
  1. REMICADE [Suspect]
     Indication: RHEUMATOID ARTHRITIS
     Dosage: , IN 1 AS NECESSARY, INTRAVENOUS DRIP
     Route: 041
     Dates: start: 20030911, end: 20030911
  2. REMICADE [Suspect]
     Indication: RHEUMATOID ARTHRITIS
     Dosage: , IN 1 AS NECESSARY, INTRAVENOUS DRIP
     Route: 041
     Dates: start: 20030925, end: 20030925
  3. REMICADE [Suspect]
     Indication: RHEUMATOID ARTHRITIS
     Dosage: , IN 1 AS NECESSARY, INTRAVENOUS DRIP
     Route: 041
     Dates: start: 20031023, end: 20031023
  4. METHOTREXATE [Concomitant]

REACTIONS (1)
  - PNEUMONIA BACTERIAL [None]
